APPROVED DRUG PRODUCT: FLUOROPLEX
Active Ingredient: FLUOROURACIL
Strength: 1%
Dosage Form/Route: SOLUTION;TOPICAL
Application: N016765 | Product #001
Applicant: ELORAC INC
Approved: Approved Prior to Jan 1, 1982 | RLD: No | RS: No | Type: DISCN